FAERS Safety Report 8129615-4 (Version None)
Quarter: 2012Q1

REPORT INFORMATION
  Report Type: 
  Country: None (occurrence: None)
  Receive Date: 20120210
  Receipt Date: 20120203
  Transmission Date: 20120608
  Serious: Yes (Hospitalization)
  Sender: FDA-Public Use
  Company Number: GB-GLAXOSMITHKLINE-B0765088A

PATIENT
  Sex: Male
  Weight: 79 kg

DRUGS (1)
  1. MALARONE [Suspect]
     Indication: MALARIA PROPHYLAXIS
     Dosage: 250MG PER DAY
     Route: 048
     Dates: start: 20111012, end: 20111110

REACTIONS (12)
  - COLD SWEAT [None]
  - PARAESTHESIA [None]
  - HEADACHE [None]
  - DIZZINESS [None]
  - VIRAL INFECTION [None]
  - PRESYNCOPE [None]
  - RESPIRATORY RATE INCREASED [None]
  - SYNCOPE [None]
  - SINUS TACHYCARDIA [None]
  - CHEST PAIN [None]
  - PALLOR [None]
  - ANXIETY [None]
